FAERS Safety Report 10098188 (Version 1)
Quarter: 2014Q2

REPORT INFORMATION
  Report Type: Spontaneous
  Country: US (occurrence: US)
  Receive Date: 20140423
  Receipt Date: 20140423
  Transmission Date: 20141212
  Serious: Yes (Life-Threatening)
  Sender: FDA-Public Use
  Company Number: US-BRISTOL-MYERS SQUIBB COMPANY-19969666

PATIENT
  Age: 65 Year
  Sex: Female

DRUGS (2)
  1. YERVOY [Suspect]
     Indication: MALIGNANT MELANOMA
     Route: 042
     Dates: start: 20130319, end: 201305
  2. TEMODAR [Concomitant]
     Indication: MALIGNANT MELANOMA
     Dosage: (100 MG FOR 1-4 DAYS, 400 MG ON 5TH DAY). ?ON (6-OCT-2013), 100 MG FOR 1-4 DAYS, 400 MG ON 5TH DAY.
     Dates: start: 20130908, end: 20130912

REACTIONS (1)
  - Malignant neoplasm progression [Unknown]
